FAERS Safety Report 6892007-X (Version None)
Quarter: 2010Q3

REPORT INFORMATION
  Report Type: 
  Country: None (occurrence: None)
  Receive Date: 20100731
  Receipt Date: 20071222
  Transmission Date: 20110219
  Serious: Yes (Other)
  Sender: FDA-Public Use
  Company Number: US-PFIZER INC-2007092998

PATIENT
  Age: 64 Year
  Sex: Female
  Weight: 51.7 kg

DRUGS (8)
  1. AMLODIPINE [Suspect]
     Indication: HYPERTENSION
     Dosage: 5 MG,DAILY
     Route: 048
     Dates: start: 20070831, end: 20071101
  2. CHANTIX [Concomitant]
  3. LEVOTHYROXINE SODIUM [Concomitant]
  4. ATENOLOL [Concomitant]
  5. WARFARIN SODIUM [Concomitant]
  6. ACIPHEX [Concomitant]
  7. COZAAR [Concomitant]
  8. CALCIUM [Concomitant]

REACTIONS (1)
  - RASH GENERALISED [None]
